FAERS Safety Report 20735031 (Version 1)
Quarter: 2022Q2

REPORT INFORMATION
  Report Type: Spontaneous
  Country: US (occurrence: US)
  Receive Date: 20220421
  Receipt Date: 20220421
  Transmission Date: 20220721
  Serious: Yes (Death, Hospitalization, Other)
  Sender: FDA-Public Use
  Company Number: US-ALVOGEN-2022-ALVOGEN-119556

PATIENT
  Age: 56 Year
  Sex: Male
  Weight: 58 kg

DRUGS (1)
  1. VORICONAZOLE [Suspect]
     Active Substance: VORICONAZOLE
     Indication: Aspergillus infection
     Dosage: 4 MG/KG
     Route: 042

REACTIONS (3)
  - Drug level below therapeutic [Fatal]
  - Aspergilloma [Fatal]
  - Disease progression [Fatal]
